FAERS Safety Report 14551933 (Version 2)
Quarter: 2018Q4

REPORT INFORMATION
  Report Type: Spontaneous
  Country: US (occurrence: US)
  Receive Date: 20180220
  Receipt Date: 20181106
  Transmission Date: 20190204
  Serious: Yes (Hospitalization, Other)
  Sender: FDA-Public Use
  Company Number: US-PFIZER INC-2018069455

PATIENT
  Age: 66 Year
  Sex: Female
  Weight: 58.5 kg

DRUGS (1)
  1. IBRANCE [Suspect]
     Active Substance: PALBOCICLIB
     Indication: BREAST CANCER METASTATIC
     Dosage: 75 MG, 1X/DAY
     Route: 048
     Dates: end: 201809

REACTIONS (8)
  - Malaise [Recovering/Resolving]
  - Pyrexia [Recovering/Resolving]
  - Tremor [Recovering/Resolving]
  - Subcutaneous abscess [Recovering/Resolving]
  - Osteomyelitis [Recovering/Resolving]
  - Balance disorder [Recovering/Resolving]
  - Fall [Recovering/Resolving]
  - Tooth disorder [Unknown]
